FAERS Safety Report 12290893 (Version 1)
Quarter: 2016Q2

REPORT INFORMATION
  Report Type: Spontaneous
  Country: US (occurrence: US)
  Receive Date: 20160421
  Receipt Date: 20160421
  Transmission Date: 20160815
  Serious: No
  Sender: FDA-Public Use
  Company Number: ADR-2015-01097

PATIENT
  Age: 47 Year
  Sex: Male

DRUGS (14)
  1. LIORESAL [Suspect]
     Active Substance: BACLOFEN
     Dosage: 171.03 MCG/DAY
     Route: 037
     Dates: start: 20120726
  2. LIORESAL [Suspect]
     Active Substance: BACLOFEN
     Route: 037
     Dates: start: 20121127
  3. LIORESAL [Suspect]
     Active Substance: BACLOFEN
     Route: 037
     Dates: start: 20120419
  4. LISINOPRIL-HYDROCHLOROTHIAZIDE [Suspect]
     Active Substance: HYDROCHLOROTHIAZIDE\LISINOPRIL
     Dosage: 10/12.5 MG/DAY
  5. OXYIR [Suspect]
     Active Substance: OXYCODONE HYDROCHLORIDE
  6. PERCOCET [Suspect]
     Active Substance: ACETAMINOPHEN\OXYCODONE HYDROCHLORIDE
     Dosage: 5/325 1 TO 2 TIMES PER DAY
  7. PRILOSEC [Suspect]
     Active Substance: OMEPRAZOLE MAGNESIUM
  8. MORPHINE SULFATE IR [Suspect]
     Active Substance: MORPHINE SULFATE
     Dosage: TWICE PER DAY
  9. LIORESAL [Suspect]
     Active Substance: BACLOFEN
     Dosage: 171.03 MCG/DAY
     Route: 037
     Dates: start: 201211
  10. PRILOSEC [Suspect]
     Active Substance: OMEPRAZOLE MAGNESIUM
  11. LIORESAL [Suspect]
     Active Substance: BACLOFEN
     Dosage: 99.9 MCG/DAY
     Route: 037
     Dates: start: 20121127
  12. LIORESAL [Suspect]
     Active Substance: BACLOFEN
     Route: 037
     Dates: start: 20141121
  13. OXYIR [Suspect]
     Active Substance: OXYCODONE HYDROCHLORIDE
  14. LIORESAL [Suspect]
     Active Substance: BACLOFEN
     Route: 037
     Dates: end: 20121127

REACTIONS (2)
  - Tremor [Recovered/Resolved]
  - Drug dose omission [None]

NARRATIVE: CASE EVENT DATE: 2012
